FAERS Safety Report 11066622 (Version 1)
Quarter: 2015Q2

REPORT INFORMATION
  Report Type: Spontaneous
  Country: US (occurrence: None)
  Receive Date: 20150416
  Receipt Date: 20150416
  Transmission Date: 20150821
  Serious: Yes (Hospitalization)
  Sender: FDA-Public Use
  Company Number: 2014P1002527

PATIENT
  Age: 51 Year
  Sex: Female
  Weight: 49.9 kg

DRUGS (18)
  1. SYNTHROID [Concomitant]
     Active Substance: LEVOTHYROXINE SODIUM
  2. VOLTAREN [Concomitant]
     Active Substance: DICLOFENAC SODIUM
  3. PREDNISONE. [Concomitant]
     Active Substance: PREDNISONE
  4. VALIUM [Concomitant]
     Active Substance: DIAZEPAM
  5. DOCUSATE [Concomitant]
     Active Substance: DOCUSATE
  6. FLEXERIL [Concomitant]
     Active Substance: CYCLOBENZAPRINE HYDROCHLORIDE
  7. PLAQUENIL [Suspect]
     Active Substance: HYDROXYCHLOROQUINE SULFATE
     Indication: SYSTEMIC LUPUS ERYTHEMATOSUS
     Route: 048
     Dates: start: 2008
  8. CRIZOTINIB [Suspect]
     Active Substance: CRIZOTINIB
     Indication: NON-SMALL CELL LUNG CANCER
     Route: 048
     Dates: start: 20131118
  9. UNSPECIFIED STUDY DRUG (C-MET/HGFR SELECTIVE TYROSINE KINASE INHIBITOR) [Suspect]
     Active Substance: INVESTIGATIONAL PRODUCT
     Indication: NON-SMALL CELL LUNG CANCER
     Route: 048
  10. WELLBUTRIN [Concomitant]
     Active Substance: BUPROPION HYDROCHLORIDE
  11. PERCOCET (OXYCODONE HYDROCHLORIDE, PARACETAMOL) [Concomitant]
  12. VENTOLIN [Concomitant]
     Active Substance: ALBUTEROL SULFATE
  13. NEURONTIN [Concomitant]
     Active Substance: GABAPENTIN
  14. TRAZODONE [Concomitant]
     Active Substance: TRAZODONE HYDROCHLORIDE
  15. REMERON [Concomitant]
     Active Substance: MIRTAZAPINE
  16. AZATHIOPRINE. [Concomitant]
     Active Substance: AZATHIOPRINE
  17. IPRATROPIUM-ALBUTEROL [Concomitant]
  18. TACROLIMUS. [Concomitant]
     Active Substance: TACROLIMUS

REACTIONS (2)
  - Febrile neutropenia [None]
  - Urinary tract infection [None]

NARRATIVE: CASE EVENT DATE: 20131202
